FAERS Safety Report 8031220-5 (Version None)
Quarter: 2012Q1

REPORT INFORMATION
  Report Type: 
  Country: None (occurrence: None)
  Receive Date: 20120109
  Receipt Date: 20120103
  Transmission Date: 20120608
  Serious: Yes (Other)
  Sender: FDA-Public Use
  Company Number: IL-ABBOTT-08P-082-0485646-00

PATIENT
  Sex: Male

DRUGS (1)
  1. SIBUTRAMINE HYDROCHLORIDE MONOHYDRATE [Suspect]
     Indication: MATERNAL EXPOSURE TIMING UNSPECIFIED
     Route: 064

REACTIONS (5)
  - AUTISM [None]
  - DIET REFUSAL [None]
  - MOVEMENT DISORDER [None]
  - FOETAL EXPOSURE DURING PREGNANCY [None]
  - NORMAL NEWBORN [None]
